FAERS Safety Report 15838394 (Version 1)
Quarter: 2019Q1

REPORT INFORMATION
  Report Type: Spontaneous
  Country: US (occurrence: US)
  Receive Date: 20190117
  Receipt Date: 20190117
  Transmission Date: 20190417
  Serious: No
  Sender: FDA-Public Use
  Company Number: PHEH2019US002607

PATIENT

DRUGS (1)
  1. COLESTYRAMINE [Suspect]
     Active Substance: CHOLESTYRAMINE
     Indication: BILE ACID MALABSORPTION
     Dosage: UNK
     Route: 065

REACTIONS (1)
  - Drug ineffective [Unknown]
